FAERS Safety Report 6677287-8 (Version None)
Quarter: 2010Q2

REPORT INFORMATION
  Report Type: 
  Country: None (occurrence: None)
  Receive Date: 20100412
  Receipt Date: 20100406
  Transmission Date: 20101027
  Serious: Yes (Disabling)
  Sender: FDA-Public Use
  Company Number: FR-B.I. PHARMACEUTICALS,INC./RIDGEFIELD-2010-FF-00233FF

PATIENT
  Sex: Male
  Weight: 64 kg

DRUGS (3)
  1. VIRAMUNE [Suspect]
     Indication: HIV INFECTION
     Dosage: 400 MG
     Route: 048
     Dates: start: 20100114, end: 20100308
  2. TRUVADA [Concomitant]
     Indication: HIV INFECTION
     Route: 048
     Dates: start: 20090922
  3. ISENTRESS [Concomitant]
     Indication: HIV INFECTION
     Dosage: 800 MG
     Route: 048
     Dates: start: 20090922

REACTIONS (5)
  - ANAEMIA [None]
  - ASTHENIA [None]
  - NEUTROPENIA [None]
  - PYREXIA [None]
  - SINUSITIS [None]
